FAERS Safety Report 24177911 (Version 1)
Quarter: 2024Q3

REPORT INFORMATION
  Report Type: Spontaneous
  Country: IT (occurrence: IT)
  Receive Date: 20240806
  Receipt Date: 20240806
  Transmission Date: 20241017
  Serious: Yes (Other)
  Sender: NOVARTIS
  Company Number: None

PATIENT
  Age: 67 Year
  Sex: Male

DRUGS (1)
  1. COSENTYX [Suspect]
     Active Substance: SECUKINUMAB
     Indication: Psoriasis
     Dosage: 300 MG, 28D (300 MG SC 1 FL OGNI 28 GIORNI SOL. INIETT IN PENNA)
     Route: 058
     Dates: start: 202203, end: 202312

REACTIONS (3)
  - Gastritis erosive [Recovering/Resolving]
  - Diverticulum intestinal [Recovering/Resolving]
  - Adenomatous polyposis coli [Recovered/Resolved]

NARRATIVE: CASE EVENT DATE: 20240201
